FAERS Safety Report 5618236-0 (Version None)
Quarter: 2008Q1

REPORT INFORMATION
  Report Type: 
  Country: None (occurrence: None)
  Receive Date: 20080207
  Receipt Date: 20071127
  Transmission Date: 20080703
  Serious: Yes (Death, Hospitalization)
  Sender: FDA-Public Use
  Company Number: IN-BAYER-200810234GPV

PATIENT

DRUGS (3)
  1. ASPIRIN [Suspect]
     Indication: MALARIA
  2. CHLOROQUINE PHOSPHATE [Suspect]
     Indication: MALARIA
  3. CHLORAMPHENICOL [Suspect]
     Indication: MALARIA

REACTIONS (13)
  - ACIDOSIS [None]
  - ANAEMIA [None]
  - ANURIA [None]
  - CHROMATURIA [None]
  - COMA [None]
  - HEADACHE [None]
  - HEPATOMEGALY [None]
  - INTRAVASCULAR HAEMOLYSIS [None]
  - JAUNDICE [None]
  - RENAL FAILURE ACUTE [None]
  - SOMNOLENCE [None]
  - SPLENOMEGALY [None]
  - VOMITING [None]
